FAERS Safety Report 11089772 (Version 3)
Quarter: 2015Q2

REPORT INFORMATION
  Report Type: Report from Study
  Country: JP (occurrence: None)
  Receive Date: 20150501
  Receipt Date: 20150501
  Transmission Date: 20150821
  Serious: Yes (Other)
  Sender: FDA-Public Use
  Company Number: 2014JP005165

PATIENT
  Age: 56 Year
  Sex: Female
  Weight: 45 kg

DRUGS (12)
  1. CYMBALTA [Concomitant]
     Active Substance: DULOXETINE HYDROCHLORIDE
  2. NEUROTROPIN /00398601/ (CYANOCOBALAMIN, LIDOCAINE HYDROCHLORIDE, PYRIDOXINE HYDROCHLORIDE, THIAMINE HYDROCHLORIDE) [Concomitant]
  3. DEPAS (ETIZOLAM) [Concomitant]
  4. SALAGEN (PILOCARPINE HYDROCHLORIDE) [Concomitant]
  5. ENBREL [Concomitant]
     Active Substance: ETANERCEPT
  6. ADALAT L (NIFEDIPINE) [Concomitant]
  7. PREDONINE /00016201/  (PREDNISOLONE) [Concomitant]
  8. PROCAINE HYDROCHLORIDE [Concomitant]
     Active Substance: PROCAINE HYDROCHLORIDE
  9. MOHRUS (KETOPROFEN) [Concomitant]
  10. REGNITE (GABAPENTIN ENACARBIL) TABLET, 300MG [Suspect]
     Active Substance: GABAPENTIN ENACARBIL
     Indication: RESTLESS LEGS SYNDROME
     Route: 048
     Dates: start: 20130312, end: 20130506
  11. LYRICA [Suspect]
     Active Substance: PREGABALIN
     Indication: FIBROMYALGIA
     Route: 048
     Dates: end: 20131113
  12. RIVOTRIL [Concomitant]
     Active Substance: CLONAZEPAM

REACTIONS (3)
  - Cystitis [None]
  - Hypertension [None]
  - Weight increased [None]

NARRATIVE: CASE EVENT DATE: 20130507
